FAERS Safety Report 20018896 (Version 1)
Quarter: 2021Q4

REPORT INFORMATION
  Report Type: Spontaneous
  Country: GB (occurrence: GB)
  Receive Date: 20211101
  Receipt Date: 20211101
  Transmission Date: 20220303
  Serious: Yes (Hospitalization)
  Sender: FDA-Public Use
  Company Number: GB-SA-SAC20211012000137

PATIENT
  Age: 13 Year
  Sex: Female
  Weight: 54.5 kg

DRUGS (12)
  1. CIPROFLOXACIN [Suspect]
     Active Substance: CIPROFLOXACIN
     Dosage: UNK UNK, BID
     Dates: start: 20210209
  2. AZITHROMYCIN [Suspect]
     Active Substance: AZITHROMYCIN
     Dosage: UNK UNK, BID
     Dates: start: 20210209
  3. DEXAMETHASONE [Suspect]
     Active Substance: DEXAMETHASONE
     Dosage: UNK UNK, BID
     Dates: start: 20201209
  4. DOCETAXEL [Suspect]
     Active Substance: DOCETAXEL
     Indication: Synovial sarcoma
     Dosage: 117 MG, UNK
     Route: 042
     Dates: start: 20201209, end: 20210310
  5. FUROSEMIDE [Suspect]
     Active Substance: FUROSEMIDE
     Indication: Oedema
     Dates: start: 20210209
  6. GEMCITABINE HYDROCHLORIDE [Suspect]
     Active Substance: GEMCITABINE HYDROCHLORIDE
     Indication: Synovial sarcoma
     Dosage: 1404 MG, UNK
     Route: 042
     Dates: start: 20201201, end: 20210310
  7. GRANULOCYTE COLONY-STIMULATING FACTOR NOS [Suspect]
     Active Substance: GRANULOCYTE COLONY-STIMULATING FACTOR NOS
     Dates: start: 20201211
  8. MEROPENEM [Suspect]
     Active Substance: MEROPENEM
     Dates: start: 20210128
  9. TAZOBACTAM SODIUM [Suspect]
     Active Substance: TAZOBACTAM SODIUM
     Dates: start: 20210128
  10. PIPERACILLIN SODIUM [Suspect]
     Active Substance: PIPERACILLIN SODIUM
     Dates: start: 20210128
  11. RAMUCIRUMAB [Suspect]
     Active Substance: RAMUCIRUMAB
     Indication: Synovial sarcoma
     Dosage: 489.6 MG, UNK
     Route: 042
     Dates: start: 20201201, end: 20210310
  12. VANCOMYCIN [Suspect]
     Active Substance: VANCOMYCIN
     Dates: start: 20210128

REACTIONS (7)
  - Pyrexia [Recovered/Resolved]
  - Plantar erythema [Recovering/Resolving]
  - Pain of skin [Recovering/Resolving]
  - Haemoglobin decreased [Unknown]
  - Platelet count increased [Unknown]
  - Dyspnoea [Unknown]
  - Pyrexia [Recovered/Resolved]

NARRATIVE: CASE EVENT DATE: 20201218
